FAERS Safety Report 13022335 (Version 1)
Quarter: 2016Q4

REPORT INFORMATION
  Report Type: Spontaneous
  Country: DE (occurrence: DE)
  Receive Date: 20161213
  Receipt Date: 20161213
  Transmission Date: 20170207
  Serious: Yes (Hospitalization, Other)
  Sender: FDA-Public Use
  Company Number: PHHY2016DE154667

PATIENT
  Age: 10 Year
  Sex: Female
  Weight: 27.1 kg

DRUGS (3)
  1. EXJADE [Suspect]
     Active Substance: DEFERASIROX
     Indication: THALASSAEMIA BETA
     Dosage: 500 MG, QD
     Route: 065
     Dates: start: 201410, end: 2015
  2. EXJADE [Suspect]
     Active Substance: DEFERASIROX
     Dosage: 1000 MG, QD
     Route: 048
     Dates: start: 201505, end: 20161103
  3. CEFACLOR. [Concomitant]
     Active Substance: CEFACLOR
     Indication: BACTERIAL INFECTION
     Dosage: UNK
     Route: 048
     Dates: start: 20161031, end: 20161103

REACTIONS (7)
  - Pyrexia [Recovered/Resolved]
  - Bacterial infection [Unknown]
  - Weight decreased [Unknown]
  - Abdominal pain [Unknown]
  - Hepatitis [Unknown]
  - Transaminases increased [Recovered/Resolved]
  - Fatigue [Recovering/Resolving]

NARRATIVE: CASE EVENT DATE: 201608
